FAERS Safety Report 15016992 (Version 2)
Quarter: 2018Q2

REPORT INFORMATION
  Report Type: Spontaneous
  Country: US (occurrence: US)
  Receive Date: 20180615
  Receipt Date: 20180620
  Transmission Date: 20180711
  Serious: Yes (Other)
  Sender: FDA-Public Use
  Company Number: US-PFIZER INC-2018242903

PATIENT
  Age: 46 Year
  Sex: Male

DRUGS (7)
  1. CYTARABINE. [Suspect]
     Active Substance: CYTARABINE
     Indication: MYELOFIBROSIS
     Dosage: UNK
  2. FILGRASTIM [Concomitant]
     Active Substance: FILGRASTIM
     Indication: ACUTE MYELOID LEUKAEMIA
  3. FILGRASTIM [Concomitant]
     Active Substance: FILGRASTIM
     Indication: MYELOFIBROSIS
     Dosage: UNK
  4. CYTARABINE. [Suspect]
     Active Substance: CYTARABINE
     Indication: ACUTE MYELOID LEUKAEMIA
     Dosage: UNK (REDUCED DOSE OF 1 G/M2)
     Route: 042
  5. FLUDARABINE [Concomitant]
     Active Substance: FLUDARABINE PHOSPHATE
     Indication: MYELOFIBROSIS
     Dosage: UNK
  6. FLUDARABINE [Concomitant]
     Active Substance: FLUDARABINE PHOSPHATE
     Indication: ACUTE MYELOID LEUKAEMIA
  7. CYTARABINE. [Suspect]
     Active Substance: CYTARABINE
     Dosage: UNK

REACTIONS (1)
  - Hepatotoxicity [Recovering/Resolving]
